FAERS Safety Report 8035937-8 (Version None)
Quarter: 2012Q1

REPORT INFORMATION
  Report Type: 
  Country: None (occurrence: None)
  Receive Date: 20120106
  Receipt Date: 20120102
  Transmission Date: 20120608
  Serious: Yes (Other)
  Sender: FDA-Public Use
  Company Number: A0959588A

PATIENT
  Age: 56 Year
  Sex: Female

DRUGS (1)
  1. CALCIUM CARBONATE [Suspect]
     Indication: DYSPEPSIA

REACTIONS (10)
  - ASPHYXIA [None]
  - APPARENT DEATH [None]
  - ANXIETY [None]
  - DYSPNOEA [None]
  - MALAISE [None]
  - RETCHING [None]
  - VOMITING [None]
  - NAUSEA [None]
  - PANIC ATTACK [None]
  - APHASIA [None]
